FAERS Safety Report 10565773 (Version 1)
Quarter: 2014Q4

REPORT INFORMATION
  Report Type: Spontaneous
  Country: BR (occurrence: BR)
  Receive Date: 20141105
  Receipt Date: 20141105
  Transmission Date: 20150529
  Serious: Yes (Hospitalization)
  Sender: FDA-Public Use
  Company Number: BR-009507513-1411BRA001181

PATIENT
  Sex: Female
  Weight: 65 kg

DRUGS (1)
  1. NASONEX [Suspect]
     Active Substance: MOMETASONE FUROATE
     Indication: RHINITIS ALLERGIC
     Dosage: 1-2 PUFFS IN EACH NOSTRIL, QD
     Route: 045
     Dates: start: 2011

REACTIONS (1)
  - Bone neoplasm [Recovered/Resolved]

NARRATIVE: CASE EVENT DATE: 201312
